FAERS Safety Report 7442042-8 (Version None)
Quarter: 2011Q2

REPORT INFORMATION
  Report Type: 
  Country: None (occurrence: None)
  Receive Date: 20110428
  Receipt Date: 20100310
  Transmission Date: 20111010
  Serious: No
  Sender: FDA-Public Use
  Company Number: US-BAYER-201016813NA

PATIENT
  Sex: Female

DRUGS (2)
  1. YAZ [Suspect]
     Dosage: UNK
     Dates: end: 20100303
  2. YAZ [Suspect]
     Dosage: UNK
     Dates: start: 20100308

REACTIONS (1)
  - POLYMENORRHOEA [None]
